FAERS Safety Report 11890002 (Version 5)
Quarter: 2021Q4

REPORT INFORMATION
  Report Type: Report from Study
  Country: CA (occurrence: CA)
  Receive Date: 20160105
  Receipt Date: 20211008
  Transmission Date: 20220304
  Serious: Yes (Death, Other)
  Sender: FDA-Public Use
  Company Number: PHHY2013CA021211

PATIENT
  Sex: Male

DRUGS (4)
  1. SANDOSTATIN LAR DEPOT [Suspect]
     Active Substance: OCTREOTIDE ACETATE
     Indication: Metastatic carcinoid tumour
     Dosage: 30 MG, QMO (EVERY  4 WEEKS)
     Route: 030
     Dates: start: 20130220
  2. SANDOSTATIN LAR DEPOT [Suspect]
     Active Substance: OCTREOTIDE ACETATE
     Dosage: 30 MG, (EVERY 3 TO 4 WEEKS)
     Route: 030
     Dates: start: 20151201
  3. SANDOSTATIN LAR DEPOT [Suspect]
     Active Substance: OCTREOTIDE ACETATE
  4. MORPHINE [Concomitant]
     Active Substance: MORPHINE
     Indication: Product used for unknown indication
     Route: 065

REACTIONS (10)
  - Death [Fatal]
  - Second primary malignancy [Unknown]
  - Neoplasm malignant [Unknown]
  - Injury associated with device [Unknown]
  - Pain [Unknown]
  - Head discomfort [Unknown]
  - Fatigue [Unknown]
  - Diarrhoea [Unknown]
  - Injection site pain [Unknown]
  - Inappropriate schedule of product administration [Unknown]

NARRATIVE: CASE EVENT DATE: 20200101
